FAERS Safety Report 7763684 (Version 3)
Quarter: 2012Q4

REPORT INFORMATION
  Report Type: 
  Country: US (occurrence: US)
  Receive Date: 20110118
  Receipt Date: 20121211
  Transmission Date: 20130627
  Serious: Yes (Hospitalization)
  Sender: FDA-Public Use
  Company Number: US-ASTRAZENECA-2011SE00241

PATIENT
  Age: 58 Year
  Sex: Female

DRUGS (4)
  1. NEXIUM [Suspect]
     Route: 048
  2. CRESTOR [Suspect]
     Route: 048
  3. CRESTOR [Suspect]
     Route: 048
  4. CRESTOR [Suspect]
     Route: 048

REACTIONS (11)
  - Gastritis [Unknown]
  - Gastritis erosive [Unknown]
  - Blood cholesterol increased [Unknown]
  - Gastrooesophageal reflux disease [Unknown]
  - Dyspepsia [Unknown]
  - Aphagia [Unknown]
  - Adverse event [Unknown]
  - Erosive oesophagitis [Unknown]
  - Pain [Unknown]
  - Drug dose omission [Unknown]
  - Intentional drug misuse [Unknown]
